FAERS Safety Report 6314635-2 (Version None)
Quarter: 2009Q3

REPORT INFORMATION
  Report Type: 
  Country: None (occurrence: None)
  Receive Date: 20090819
  Receipt Date: 20090529
  Transmission Date: 20100115
  Serious: No
  Sender: FDA-Public Use
  Company Number: US-BAYER-200922353NA

PATIENT
  Age: 35 Year
  Sex: Female

DRUGS (2)
  1. YAZ [Suspect]
     Indication: UTERINE LEIOMYOMA
     Route: 048
     Dates: start: 20090401
  2. PROVERA [Concomitant]
     Indication: MENORRHAGIA

REACTIONS (2)
  - MENORRHAGIA [None]
  - NO ADVERSE EVENT [None]
